FAERS Safety Report 11110713 (Version 1)
Quarter: 2015Q2

REPORT INFORMATION
  Report Type: Spontaneous
  Country: US (occurrence: US)
  Receive Date: 20150513
  Receipt Date: 20150513
  Transmission Date: 20150821
  Serious: No
  Sender: FDA-Public Use
  Company Number: US-GLAXOSMITHKLINE-US2015017323

PATIENT
  Age: 47 Year

DRUGS (2)
  1. WALGREEN NICOTINE [Suspect]
     Active Substance: NICOTINE
     Indication: SMOKING CESSATION THERAPY
  2. WALGREEN NICOTINE [Suspect]
     Active Substance: NICOTINE

REACTIONS (2)
  - Burning sensation [Recovered/Resolved]
  - Bone pain [Recovered/Resolved]
